FAERS Safety Report 12809881 (Version 1)
Quarter: 2016Q4

REPORT INFORMATION
  Report Type: Report from Study
  Country: US (occurrence: US)
  Receive Date: 20161005
  Receipt Date: 20161005
  Transmission Date: 20170207
  Serious: No
  Sender: FDA-Public Use
  Company Number: PHEH2016US025459

PATIENT

DRUGS (1)
  1. COSENTYX [Suspect]
     Active Substance: SECUKINUMAB
     Indication: PSORIASIS
     Dosage: 300 MG,(ONCE A WEEK FOR FIVE DOSES FOLLOWED BY ONE DOSE PER MONTH)
     Route: 058
     Dates: start: 20160412

REACTIONS (1)
  - Malaise [Unknown]
